FAERS Safety Report 5107848-9 (Version None)
Quarter: 2006Q3

REPORT INFORMATION
  Report Type: 
  Country: None (occurrence: None)
  Receive Date: 20060919
  Receipt Date: 20060907
  Transmission Date: 20061208
  Serious: Yes (Other)
  Sender: FDA-Public Use
  Company Number: US-JNJFOC-20060901966

PATIENT
  Sex: Female
  Weight: 95.26 kg

DRUGS (7)
  1. DURAGESIC-100 [Suspect]
     Indication: BACK PAIN
     Route: 062
  2. PROZAC [Suspect]
     Indication: ANXIETY
     Route: 048
  3. MICRONASE [Concomitant]
     Indication: DIABETES MELLITUS
     Route: 048
  4. LASIX [Concomitant]
     Indication: OEDEMA PERIPHERAL
     Route: 048
  5. RESTORIL [Concomitant]
     Indication: SLEEP DISORDER
     Route: 048
  6. OXYCODONE HCL [Concomitant]
     Indication: BACK PAIN
     Route: 048
  7. ASPIRIN [Concomitant]
     Route: 048

REACTIONS (4)
  - BLOOD CHOLESTEROL INCREASED [None]
  - BLOOD PRESSURE INCREASED [None]
  - DIZZINESS [None]
  - FALL [None]
